FAERS Safety Report 4770763-4 (Version None)
Quarter: 2005Q3

REPORT INFORMATION
  Report Type: 
  Country: None (occurrence: None)
  Receive Date: 20050914
  Receipt Date: 20050914
  Transmission Date: 20060218
  Serious: Yes (Hospitalization)
  Sender: FDA-Public Use
  Company Number: None

PATIENT
  Age: 87 Year
  Sex: Female

DRUGS (11)
  1. PRIMAXIN [Suspect]
     Indication: SEPSIS
     Dosage: 250 MG   Q8H  IV
     Route: 042
     Dates: start: 20050512, end: 20050512
  2. AMLODIPINE [Concomitant]
  3. METOPROLOL [Concomitant]
  4. CLOPIDOGREL [Concomitant]
  5. PHENYTOIN [Concomitant]
  6. ASPIRIN [Concomitant]
  7. ZINC OXIDE [Concomitant]
  8. DORZOLAMIDE [Concomitant]
  9. HEPARIN [Concomitant]
  10. ENALAPRIL [Concomitant]
  11. HYDROCORTIS [Concomitant]

REACTIONS (1)
  - GRAND MAL CONVULSION [None]
